FAERS Safety Report 4449761-6 (Version None)
Quarter: 2004Q3

REPORT INFORMATION
  Report Type: 
  Country: None (occurrence: None)
  Receive Date: 20040913
  Receipt Date: 20040903
  Transmission Date: 20050211
  Serious: Yes (Other)
  Sender: FDA-Public Use
  Company Number: 2004-09-0327

PATIENT
  Sex: Female

DRUGS (1)
  1. INTRON A [Suspect]
     Indication: ANGIOSARCOMA

REACTIONS (2)
  - DIPLEGIA [None]
  - MUSCLE SPASTICITY [None]
